FAERS Safety Report 23802783 (Version 1)
Quarter: 2024Q2

REPORT INFORMATION
  Report Type: Spontaneous
  Country: FR (occurrence: FR)
  Receive Date: 20240501
  Receipt Date: 20240501
  Transmission Date: 20240716
  Serious: Yes (Hospitalization)
  Sender: FDA-Public Use
  Company Number: None

PATIENT
  Age: 66 Year
  Sex: Male
  Weight: 85 kg

DRUGS (19)
  1. CARBOPLATIN [Suspect]
     Active Substance: CARBOPLATIN
     Indication: Lung adenocarcinoma
     Dosage: 540 MG EN UNE PERFUSION IV
     Dates: start: 20231212, end: 20231212
  2. PACLITAXEL [Suspect]
     Active Substance: PACLITAXEL
     Indication: Lung adenocarcinoma
     Dosage: 175 MG AS AN IV INFUSION
     Dates: start: 20231226, end: 20231226
  3. AMIODARONE [Suspect]
     Active Substance: AMIODARONE
     Indication: Atrial fibrillation
     Dosage: 200 MG IN THE MORNING
     Dates: start: 20240130, end: 20240318
  4. PACLITAXEL [Suspect]
     Active Substance: PACLITAXEL
     Indication: Lung adenocarcinoma
     Dosage: 175 MG AS AN IV INFUSION
     Dates: start: 20231219, end: 20231219
  5. PACLITAXEL [Suspect]
     Active Substance: PACLITAXEL
     Indication: Lung adenocarcinoma
     Dosage: 78 MG AS AN IV INFUSION
     Dates: start: 20240123, end: 20240123
  6. PACLITAXEL [Suspect]
     Active Substance: PACLITAXEL
     Indication: Lung adenocarcinoma
     Dosage: 78 MG AS AN IV INFUSION
     Dates: start: 20240220, end: 20240220
  7. PACLITAXEL [Suspect]
     Active Substance: PACLITAXEL
     Indication: Lung adenocarcinoma
     Dosage: 78 MG AS AN IV INFUSION
     Dates: start: 20240227, end: 20240227
  8. PACLITAXEL [Suspect]
     Active Substance: PACLITAXEL
     Indication: Lung adenocarcinoma
     Dosage: 78 MG AS AN IV INFUSION
     Dates: start: 20240206, end: 20240206
  9. PACLITAXEL [Suspect]
     Active Substance: PACLITAXEL
     Indication: Lung adenocarcinoma
     Dosage: 175 MG AS AN IV INFUSION
     Dates: start: 20231212, end: 20231212
  10. CARBOPLATIN [Suspect]
     Active Substance: CARBOPLATIN
     Indication: Lung adenocarcinoma
     Dosage: 208 MG AS AN IV INFUSION
     Dates: start: 20240130, end: 20240130
  11. CARBOPLATIN [Suspect]
     Active Substance: CARBOPLATIN
     Indication: Lung adenocarcinoma
     Dosage: 218 MG AS AN IV INFUSION
     Dates: start: 20240116, end: 20240116
  12. CARBOPLATIN [Suspect]
     Active Substance: CARBOPLATIN
     Indication: Lung adenocarcinoma
     Dosage: 213 MG AS AN IV INFUSION
     Dates: start: 20240220, end: 20240220
  13. CARBOPLATIN [Suspect]
     Active Substance: CARBOPLATIN
     Indication: Lung adenocarcinoma
     Dosage: 213 MG AS AN IV INFUSION
     Dates: start: 20240123, end: 20240123
  14. CARBOPLATIN [Suspect]
     Active Substance: CARBOPLATIN
     Indication: Lung adenocarcinoma
     Dosage: 204 MG AS AN IV INFUSION
     Dates: start: 20240206, end: 20240206
  15. CARBOPLATIN [Suspect]
     Active Substance: CARBOPLATIN
     Indication: Lung adenocarcinoma
     Dosage: 208 MG AS AN IV INFUSION
     Dates: start: 20240227, end: 20240227
  16. CARBOPLATIN [Suspect]
     Active Substance: CARBOPLATIN
     Indication: Lung adenocarcinoma
     Dosage: 224 MG AS AN IV INFUSION
     Dates: start: 20240213, end: 20240213
  17. PACLITAXEL [Suspect]
     Active Substance: PACLITAXEL
     Indication: Lung adenocarcinoma
     Dosage: 78 MG AS AN IV INFUSION
     Dates: start: 20240116, end: 20240116
  18. PACLITAXEL [Suspect]
     Active Substance: PACLITAXEL
     Indication: Lung adenocarcinoma
     Dosage: 78 MG AS AN IV INFUSION
     Dates: start: 20240130, end: 20240130
  19. PACLITAXEL [Suspect]
     Active Substance: PACLITAXEL
     Indication: Lung adenocarcinoma
     Dosage: 78 MG AS AN IV INFUSION
     Dates: start: 20240213, end: 20240213

REACTIONS (1)
  - Interstitial lung disease [Not Recovered/Not Resolved]

NARRATIVE: CASE EVENT DATE: 20240312
